FAERS Safety Report 4326087-2 (Version None)
Quarter: 2004Q1

REPORT INFORMATION
  Report Type: 
  Country: None (occurrence: None)
  Receive Date: 20040324
  Receipt Date: 20040310
  Transmission Date: 20041129
  Serious: Yes (Death, Hospitalization)
  Sender: FDA-Public Use
  Company Number: JP_040302774

PATIENT
  Age: 57 Year
  Sex: Male

DRUGS (5)
  1. ONCOVIN [Suspect]
     Indication: ADULT T-CELL LYMPHOMA/LEUKAEMIA
     Dosage: 2 MG OTHER
     Route: 050
     Dates: start: 19990526
  2. CYCLOPHOSPHAMIDE [Concomitant]
  3. DOXORUBICIN HYDROCHLORIDE [Concomitant]
  4. PREDNISOLONE [Concomitant]
  5. ETOPOSIDE [Concomitant]

REACTIONS (9)
  - HAEMODIALYSIS [None]
  - HEPATIC ENCEPHALOPATHY [None]
  - HEPATIC FUNCTION ABNORMAL [None]
  - HEPATIC NECROSIS [None]
  - HEPATITIS B [None]
  - JAUNDICE [None]
  - LYMPHOCYTE MORPHOLOGY ABNORMAL [None]
  - MALAISE [None]
  - PLATELET COUNT DECREASED [None]
